FAERS Safety Report 24095624 (Version 1)
Quarter: 2024Q3

REPORT INFORMATION
  Report Type: Spontaneous
  Country: IT (occurrence: IT)
  Receive Date: 20240716
  Receipt Date: 20240716
  Transmission Date: 20241016
  Serious: Yes (Other)
  Sender: TEVA
  Company Number: None

PATIENT
  Age: 40 Year
  Sex: Female
  Weight: 49 kg

DRUGS (3)
  1. FREMANEZUMAB [Suspect]
     Active Substance: FREMANEZUMAB
     Indication: Migraine
     Dosage: 225 MG 1 FL/MONTH, DURATION: 1.6 YEARS
     Route: 058
     Dates: start: 20211004, end: 20230510
  2. TICHE [Concomitant]
     Indication: Hypothyroidism
     Dosage: VARIABLE
     Route: 048
     Dates: start: 2005
  3. AMITRIPTYLINE HYDROCHLORIDE [Concomitant]
     Active Substance: AMITRIPTYLINE HYDROCHLORIDE
     Indication: Migraine
     Dosage: 15 GTT IN THE EVENING
     Route: 048
     Dates: start: 2020

REACTIONS (1)
  - Ophthalmic vein thrombosis [Recovered/Resolved]

NARRATIVE: CASE EVENT DATE: 20230601
